FAERS Safety Report 6157999-5 (Version None)
Quarter: 2009Q2

REPORT INFORMATION
  Report Type: 
  Country: None (occurrence: None)
  Receive Date: 20090414
  Receipt Date: 20090414
  Transmission Date: 20091009
  Serious: Yes (Hospitalization)
  Sender: FDA-Public Use
  Company Number: None

PATIENT
  Sex: Male
  Weight: 122.9248 kg

DRUGS (1)
  1. AVAZTIN [Suspect]
     Dosage: 1205 MG EVERY OTHER WEEK
     Dates: start: 20071009, end: 20090324

REACTIONS (4)
  - DEHYDRATION [None]
  - FLUID OVERLOAD [None]
  - RENAL FAILURE ACUTE [None]
  - WEIGHT INCREASED [None]
